FAERS Safety Report 7053955-3 (Version None)
Quarter: 2010Q4

REPORT INFORMATION
  Report Type: 
  Country: None (occurrence: None)
  Receive Date: 20101020
  Receipt Date: 20101015
  Transmission Date: 20110411
  Serious: Yes (Hospitalization)
  Sender: FDA-Public Use
  Company Number: A0887090A

PATIENT
  Age: 72 Year
  Sex: Male

DRUGS (1)
  1. ARZERRA [Suspect]
     Dosage: 2000MG WEEKLY
     Route: 042
     Dates: start: 20101001

REACTIONS (1)
  - PLATELET COUNT DECREASED [None]
